FAERS Safety Report 10073426 (Version 1)
Quarter: 2014Q2

REPORT INFORMATION
  Report Type: Spontaneous
  Country: JP (occurrence: JP)
  Receive Date: 20140411
  Receipt Date: 20140411
  Transmission Date: 20141212
  Serious: Yes (Other)
  Sender: FDA-Public Use
  Company Number: JP-OTSUKA-JP-2014-13083

PATIENT
  Age: 70 Year
  Sex: Female

DRUGS (1)
  1. SAMSCA [Suspect]
     Indication: CARDIAC FAILURE
     Dosage: 7.5 MG MILLIGRAM(S), DAILY DOSE
     Route: 048

REACTIONS (2)
  - Altered state of consciousness [Recovered/Resolved]
  - Hypernatraemia [Recovered/Resolved]
